FAERS Safety Report 6744577-X (Version None)
Quarter: 2010Q2

REPORT INFORMATION
  Report Type: 
  Country: None (occurrence: None)
  Receive Date: 20100527
  Receipt Date: 20100526
  Transmission Date: 20101027
  Serious: Yes (Hospitalization)
  Sender: FDA-Public Use
  Company Number: IT-WYE-G05905810

PATIENT
  Sex: Male

DRUGS (4)
  1. TAZOCIN [Suspect]
     Route: 042
     Dates: start: 20100328, end: 20100328
  2. METRONIDAZOLE [Concomitant]
     Dosage: NOT PROVIDED
     Dates: start: 20100328, end: 20100328
  3. PARIET [Concomitant]
     Dosage: NOT PROVIDED
  4. LERCANIDIPINE [Concomitant]

REACTIONS (5)
  - FACE OEDEMA [None]
  - HOT FLUSH [None]
  - LOCALISED OEDEMA [None]
  - PRURITUS [None]
  - RASH [None]
